FAERS Safety Report 4489177-X (Version None)
Quarter: 2004Q4

REPORT INFORMATION
  Report Type: 
  Country: None (occurrence: None)
  Receive Date: 20041029
  Receipt Date: 20041018
  Transmission Date: 20050328
  Serious: Yes (Hospitalization)
  Sender: FDA-Public Use
  Company Number: FR-JNJFOC-20040806441

PATIENT
  Sex: Female
  Weight: 68 kg

DRUGS (1)
  1. REMINYL [Suspect]
     Route: 049
     Dates: start: 20030701, end: 20040818

REACTIONS (4)
  - LOSS OF CONSCIOUSNESS [None]
  - MALAISE [None]
  - SYNCOPE [None]
  - VOMITING [None]
